FAERS Safety Report 14259158 (Version 1)
Quarter: 2017Q4

REPORT INFORMATION
  Report Type: Spontaneous
  Country: US (occurrence: US)
  Receive Date: 20171207
  Receipt Date: 20171207
  Transmission Date: 20180321
  Serious: Yes (Other)
  Sender: FDA-Public Use
  Company Number: None

PATIENT
  Age: 49 Year
  Sex: Male
  Weight: 123.75 kg

DRUGS (5)
  1. HUMALOG [Concomitant]
     Active Substance: INSULIN LISPRO
  2. ADVIL [Concomitant]
     Active Substance: IBUPROFEN
  3. DOXYCYCLINE MONO 100 MG PAR PHARMACEUTICAL [Suspect]
     Active Substance: DOXYCYCLINE
     Indication: EAR PAIN
     Dosage: ?          QUANTITY:20 CAPSULE(S);?
     Route: 048
     Dates: start: 20171129, end: 20171201
  4. TYLENOL [Concomitant]
     Active Substance: ACETAMINOPHEN
  5. LEVITRA [Concomitant]
     Active Substance: VARDENAFIL HYDROCHLORIDE TRIHYDRATE

REACTIONS (4)
  - Musculoskeletal disorder [None]
  - Urticaria [None]
  - Rash [None]
  - Burning sensation [None]

NARRATIVE: CASE EVENT DATE: 20171201
